FAERS Safety Report 4781536-0 (Version None)
Quarter: 2005Q3

REPORT INFORMATION
  Report Type: 
  Country: None (occurrence: None)
  Receive Date: 20050922
  Receipt Date: 20050905
  Transmission Date: 20060218
  Serious: Yes (Hospitalization)
  Sender: FDA-Public Use
  Company Number: ST-2005-008575

PATIENT
  Age: 40 Year
  Sex: Male

DRUGS (25)
  1. OLMESARTAN [Suspect]
     Indication: DIABETES MELLITUS NON-INSULIN-DEPENDENT
     Dosage: 10 MG QD PO
     Route: 048
     Dates: start: 20041214, end: 20050822
  2. OLMESARTAN [Suspect]
     Indication: DIABETIC NEPHROPATHY
     Dosage: 10 MG QD PO
     Route: 048
     Dates: start: 20041214, end: 20050822
  3. PLACEBO [Suspect]
     Dosage: PLACEBO
     Dates: start: 20041102, end: 20041213
  4. PLACEBO [Suspect]
     Dosage: 10 MG QD PO
     Route: 048
     Dates: start: 20041214, end: 20050822
  5. ACERTIL [Suspect]
     Indication: DIABETIC NEPHROPATHY
     Dosage: 4 MG QD PO
     Route: 048
     Dates: start: 20041102, end: 20050822
  6. ACERTIL [Suspect]
     Indication: HYPERTENSION
     Dosage: 4 MG QD PO
     Route: 048
     Dates: start: 20041102, end: 20050822
  7. PROTAPHANE MC [Concomitant]
  8. LESCOL XL [Concomitant]
  9. ADALAT [Concomitant]
  10. LASIX [Concomitant]
  11. AQUEOUS CREAM [Concomitant]
  12. EURAX A [Concomitant]
  13. SAROTEN [Concomitant]
  14. ACTIFED [Concomitant]
  15. ACETAMINOPHEN [Concomitant]
  16. GLYCERYL TRINITRATE [Concomitant]
  17. PEPCIDIN [Concomitant]
  18. XALATAN [Concomitant]
  19. CRAVIT [Concomitant]
  20. PRED FORTE [Concomitant]
  21. ACTRAPID HUMAN [Concomitant]
  22. TRI-ACT [Concomitant]
  23. GASTEEL [Concomitant]
  24. ACTRAPID HUMAN [Concomitant]
  25. HYDROCHLOROTHIAZIDE [Concomitant]

REACTIONS (3)
  - BLOOD CREATININE INCREASED [None]
  - CATARACT [None]
  - HYPERKALAEMIA [None]
